FAERS Safety Report 26080231 (Version 1)
Quarter: 2025Q4

REPORT INFORMATION
  Report Type: Spontaneous
  Country: CN (occurrence: CN)
  Receive Date: 20251124
  Receipt Date: 20251124
  Transmission Date: 20260117
  Serious: Yes (Other)
  Sender: SANDOZ
  Company Number: CN-ASTELLAS-2024US022879

PATIENT
  Age: 61 Year
  Sex: Male
  Weight: 60 kg

DRUGS (4)
  1. ESOMEPRAZOLE SODIUM [Suspect]
     Active Substance: ESOMEPRAZOLE SODIUM
     Indication: Gastrointestinal disorder prophylaxis
     Dosage: 80 MG, ONCE DAILY [ALSO REPORTED AS 80MG BID]
     Route: 042
     Dates: start: 20240716, end: 20240725
  2. MEROPENEM [Suspect]
     Active Substance: MEROPENEM
     Indication: Infection
     Dosage: 0.5 G, THRICE DAILY [1G TID]
     Route: 042
     Dates: start: 20240716, end: 20240725
  3. METHYLPREDNISOLONE SODIUM SUCCINATE [Suspect]
     Active Substance: METHYLPREDNISOLONE SODIUM SUCCINATE
     Indication: Inflammation
     Dosage: 80.000MG
     Route: 042
     Dates: start: 20240716, end: 20240725
  4. MYCAMINE [Suspect]
     Active Substance: MICAFUNGIN SODIUM
     Indication: Infection
     Dosage: 50.000MG
     Route: 042
     Dates: start: 20240718, end: 20240728

REACTIONS (5)
  - Prothrombin level decreased [Unknown]
  - Red blood cell count decreased [Unknown]
  - Haemoglobin decreased [Unknown]
  - International normalised ratio increased [Unknown]
  - Anaemia [Unknown]

NARRATIVE: CASE EVENT DATE: 20240727
